FAERS Safety Report 5954835-4 (Version None)
Quarter: 2008Q4

REPORT INFORMATION
  Report Type: 
  Country: None (occurrence: None)
  Receive Date: 20081113
  Receipt Date: 20081113
  Transmission Date: 20090506
  Serious: No
  Sender: FDA-Public Use
  Company Number: None

PATIENT
  Sex: Female
  Weight: 99.7913 kg

DRUGS (2)
  1. VESICARE [Suspect]
     Indication: POLLAKIURIA
     Dosage: 1 PILL DAILY PO
     Route: 048
     Dates: start: 20081010, end: 20081111
  2. OYTROL TRANSDERMAL PATCH  3.9MG WATSON PHARMA [Suspect]
     Indication: POLLAKIURIA
     Dosage: 1 PATCH TWICE WEEK TRANSDERMAL
     Route: 062
     Dates: start: 20081010, end: 20081111

REACTIONS (1)
  - HYPERTENSION [None]
